FAERS Safety Report 14966848 (Version 1)
Quarter: 2018Q2

REPORT INFORMATION
  Report Type: Spontaneous
  Country: US (occurrence: US)
  Receive Date: 20180604
  Receipt Date: 20180604
  Transmission Date: 20180711
  Serious: Yes (Hospitalization, Other)
  Sender: FDA-Public Use
  Company Number: US-CHEPLA-C20170642

PATIENT
  Age: 7 Year
  Sex: Female

DRUGS (2)
  1. ORLISTAT. [Suspect]
     Active Substance: ORLISTAT
  2. METFORMIN [Suspect]
     Active Substance: METFORMIN HYDROCHLORIDE

REACTIONS (4)
  - Pancreatitis relapsing [Recovered/Resolved]
  - Respiratory tract infection [Recovered/Resolved]
  - Drug ineffective [Not Recovered/Not Resolved]
  - Asthma [Recovered/Resolved]

NARRATIVE: CASE EVENT DATE: 201211
